FAERS Safety Report 22257633 (Version 1)
Quarter: 2023Q2

REPORT INFORMATION
  Report Type: Spontaneous
  Country: JP (occurrence: JP)
  Receive Date: 20230427
  Receipt Date: 20230427
  Transmission Date: 20230721
  Serious: Yes (Other)
  Sender: FDA-Public Use
  Company Number: JP-NOVOPROD-1054557

PATIENT
  Sex: Male

DRUGS (1)
  1. NOVORAPID [Suspect]
     Active Substance: INSULIN ASPART
     Indication: Type 1 diabetes mellitus
     Dosage: UNK
     Route: 058

REACTIONS (6)
  - Loss of consciousness [Unknown]
  - Dehydration [Unknown]
  - Hyperglycaemia [Unknown]
  - Physical deconditioning [Unknown]
  - Decreased immune responsiveness [Unknown]
  - Purulence [Unknown]

NARRATIVE: CASE EVENT DATE: 20220101
